FAERS Safety Report 23699384 (Version 1)
Quarter: 2024Q2

REPORT INFORMATION
  Report Type: Spontaneous
  Country: US (occurrence: US)
  Receive Date: 20240402
  Receipt Date: 20240402
  Transmission Date: 20240716
  Serious: No
  Sender: FDA-Public Use
  Company Number: US-009507513-2404USA000225

PATIENT
  Age: 46 Year

DRUGS (2)
  1. TEMODAR [Suspect]
     Active Substance: TEMOZOLOMIDE
     Indication: Glioblastoma
     Dosage: UNK
     Route: 048
  2. TEMODAR [Suspect]
     Active Substance: TEMOZOLOMIDE
     Dosage: STARTING DOSE OF 5 MG, AND DOSE ESCALATIONS OCCURRED EVERY 45 MINUTES UNTIL CUMULATIVE THERAPEUTIC D
     Route: 048

REACTIONS (1)
  - Urticaria [Unknown]
